FAERS Safety Report 10905368 (Version 1)
Quarter: 2015Q1

REPORT INFORMATION
  Report Type: Spontaneous
  Country: US (occurrence: None)
  Receive Date: 20150309
  Receipt Date: 20150309
  Transmission Date: 20150721
  Serious: Yes (Other)
  Sender: FDA-Public Use
  Company Number: None

PATIENT
  Age: 55 Year
  Sex: Male
  Weight: 86.18 kg

DRUGS (1)
  1. CIALIS [Suspect]
     Active Substance: TADALAFIL
     Indication: BENIGN PROSTATIC HYPERPLASIA
     Dosage: TAKEN BY MOUTH

REACTIONS (5)
  - Eye irritation [None]
  - Flushing [None]
  - Hypoaesthesia oral [None]
  - Vision blurred [None]
  - Conjunctival haemorrhage [None]

NARRATIVE: CASE EVENT DATE: 20150306
